FAERS Safety Report 9725471 (Version 1)
Quarter: 2013Q4

REPORT INFORMATION
  Report Type: Spontaneous
  Country: US (occurrence: None)
  Receive Date: 20131202
  Receipt Date: 20131202
  Transmission Date: 20140711
  Serious: Yes (Other)
  Sender: FDA-Public Use
  Company Number: None

PATIENT
  Age: 7 Year
  Sex: Male
  Weight: 22.23 kg

DRUGS (1)
  1. METHYLPHENIDATE ER [Suspect]
     Indication: ATTENTION DEFICIT/HYPERACTIVITY DISORDER
     Dosage: 1 DAILY TAKEN BY MOUTH
     Dates: start: 20131125, end: 20131129

REACTIONS (7)
  - Abnormal behaviour [None]
  - Tic [None]
  - Sensory disturbance [None]
  - Affect lability [None]
  - Aggression [None]
  - Agitation [None]
  - Disturbance in attention [None]
